FAERS Safety Report 16428194 (Version 1)
Quarter: 2019Q2

REPORT INFORMATION
  Report Type: Spontaneous
  Country: US (occurrence: US)
  Receive Date: 20190613
  Receipt Date: 20190613
  Transmission Date: 20190711
  Serious: Yes (Hospitalization, Other)
  Sender: FDA-Public Use
  Company Number: US-MYLANLABS-2019M1055673

PATIENT
  Age: 40 Year
  Sex: Male

DRUGS (2)
  1. ARSENIC TRIOXIDE. [Suspect]
     Active Substance: ARSENIC TRIOXIDE
     Indication: ACUTE PROMYELOCYTIC LEUKAEMIA
     Route: 065
  2. TRETINOIN. [Suspect]
     Active Substance: TRETINOIN
     Indication: ACUTE PROMYELOCYTIC LEUKAEMIA
     Route: 065

REACTIONS (8)
  - Febrile neutropenia [Unknown]
  - Renal impairment [Unknown]
  - Sepsis [Unknown]
  - Pneumatosis intestinalis [Unknown]
  - Corona virus infection [Unknown]
  - Clostridium difficile colitis [Unknown]
  - Upper respiratory tract infection [Unknown]
  - Sinusitis [Unknown]
